FAERS Safety Report 15993456 (Version 3)
Quarter: 2019Q1

REPORT INFORMATION
  Report Type: Spontaneous
  Country: US (occurrence: US)
  Receive Date: 20190222
  Receipt Date: 20190326
  Transmission Date: 20190418
  Serious: Yes (Hospitalization, Disabling, Other)
  Sender: FDA-Public Use
  Company Number: US-ABBVIE-19K-163-2672984-00

PATIENT
  Age: 36 Year
  Sex: Female
  Weight: 120.31 kg

DRUGS (2)
  1. HUMIRA [Suspect]
     Active Substance: ADALIMUMAB
     Route: 058
     Dates: start: 2016, end: 20170601
  2. HUMIRA [Suspect]
     Active Substance: ADALIMUMAB
     Indication: HIDRADENITIS
     Route: 058
     Dates: start: 2016, end: 2016

REACTIONS (17)
  - Cardiac dysfunction [Not Recovered/Not Resolved]
  - Hidradenitis [Not Recovered/Not Resolved]
  - Loss of personal independence in daily activities [Not Recovered/Not Resolved]
  - Loss of consciousness [Recovered/Resolved]
  - Cardiac failure [Not Recovered/Not Resolved]
  - Pneumonia [Recovered/Resolved]
  - Pulmonary fibrosis [Not Recovered/Not Resolved]
  - Impaired work ability [Not Recovered/Not Resolved]
  - Post-traumatic stress disorder [Not Recovered/Not Resolved]
  - Nasopharyngitis [Recovered/Resolved]
  - Asthenia [Not Recovered/Not Resolved]
  - Cardiomyopathy [Not Recovered/Not Resolved]
  - Disability [Not Recovered/Not Resolved]
  - Depression [Not Recovered/Not Resolved]
  - Lung infection [Unknown]
  - Incoherent [Recovered/Resolved]
  - Burning sensation [Recovered/Resolved]

NARRATIVE: CASE EVENT DATE: 2016
